FAERS Safety Report 8050496-1 (Version None)
Quarter: 2012Q1

REPORT INFORMATION
  Report Type: 
  Country: None (occurrence: None)
  Receive Date: 20120117
  Receipt Date: 20120112
  Transmission Date: 20120608
  Serious: Yes (Other)
  Sender: FDA-Public Use
  Company Number: US-PFIZER INC-2012009974

PATIENT
  Sex: Female
  Weight: 109 kg

DRUGS (3)
  1. NORVASC [Suspect]
     Dosage: 10 MG, 1X/DAY
     Route: 048
  2. NEXIUM [Concomitant]
     Dosage: UNK
  3. PREMARIN [Suspect]
     Dosage: 0.45 MG, 1X/DAY
     Route: 048

REACTIONS (1)
  - ANKLE FRACTURE [None]
